FAERS Safety Report 8165655-7 (Version None)
Quarter: 2012Q1

REPORT INFORMATION
  Report Type: 
  Country: None (occurrence: None)
  Receive Date: 20120227
  Receipt Date: 20120215
  Transmission Date: 20120608
  Serious: Yes (Life-Threatening)
  Sender: FDA-Public Use
  Company Number: CN-BRISTOL-MYERS SQUIBB COMPANY-16418071

PATIENT
  Age: 57 Year
  Sex: Male
  Weight: 62 kg

DRUGS (3)
  1. VINORELBINE TARTRATE [Suspect]
     Indication: NON-SMALL CELL LUNG CANCER
     Dosage: 13NOV09-20NOV09;7D;D1,D8,04DEC09-UNK;34MG;D1,8,30DEC09-29JAN10;22MG;30D;D1,8
     Route: 042
     Dates: start: 20091113, end: 20100129
  2. CETUXIMAB [Suspect]
     Indication: NON-SMALL CELL LUNG CANCER
     Dosage: 07NOV09-07NOV09,13NOV09-27NOV09;14D;430MG,04DEC09-05FEB10;63D;400MG,INTRAVENOUS INFUSION
     Route: 041
     Dates: start: 20091107, end: 20100205
  3. CISPLATIN [Suspect]
     Indication: NON-SMALL CELL LUNG CANCER
     Dosage: 13NOV09-13NOV09;D1,D8,04DEC09-04DEC09;108MG;D1,D8,30DEC09-22JAN10;23DAYS;35MG;D1,8
     Route: 041
     Dates: start: 20091113, end: 20100122

REACTIONS (1)
  - BONE MARROW FAILURE [None]
